FAERS Safety Report 13071681 (Version 2)
Quarter: 2017Q2

REPORT INFORMATION
  Report Type: Spontaneous
  Country: US (occurrence: US)
  Receive Date: 20161229
  Receipt Date: 20170426
  Transmission Date: 20170830
  Serious: No
  Sender: FDA-Public Use
  Company Number: US-TEVA-718680ACC

PATIENT
  Age: 32 Year
  Sex: Female
  Weight: 79.45 kg

DRUGS (1)
  1. PARAGARD T 380A [Suspect]
     Active Substance: COPPER
     Indication: CONTRACEPTION
     Dates: start: 20160720

REACTIONS (2)
  - Device expulsion [Not Recovered/Not Resolved]
  - Cervical cyst [Unknown]

NARRATIVE: CASE EVENT DATE: 20161130
